FAERS Safety Report 7376132-5 (Version None)
Quarter: 2011Q1

REPORT INFORMATION
  Report Type: 
  Country: None (occurrence: None)
  Receive Date: 20110325
  Receipt Date: 20110321
  Transmission Date: 20110831
  Serious: Yes (Congenital Anomaly, Other)
  Sender: FDA-Public Use
  Company Number: US-PFIZER INC-2011062424

PATIENT
  Sex: Female
  Weight: 1.814 kg

DRUGS (2)
  1. BUSPIRONE [Concomitant]
     Dosage: UNK
     Route: 064
  2. EFFEXOR [Suspect]
     Indication: DEPRESSION
     Dosage: 150 MG, 1X/DAY
     Route: 064
     Dates: start: 20061001

REACTIONS (4)
  - HYPOPLASTIC LEFT HEART SYNDROME [None]
  - PULMONARY HYPERTENSION [None]
  - DRUG EXPOSURE DURING PREGNANCY [None]
  - PREMATURE BABY [None]
